FAERS Safety Report 4913821-3 (Version None)
Quarter: 2006Q1

REPORT INFORMATION
  Report Type: 
  Country: None (occurrence: None)
  Receive Date: 20060216
  Receipt Date: 20060207
  Transmission Date: 20060701
  Serious: Yes (Hospitalization)
  Sender: FDA-Public Use
  Company Number: FR-BRISTOL-MYERS SQUIBB COMPANY-13279419

PATIENT
  Age: 59 Year
  Sex: Male

DRUGS (2)
  1. APROVEL TABS 150 MG [Suspect]
     Route: 048
     Dates: start: 20050101
  2. ANTIBIOTICS [Concomitant]
     Dates: start: 20050101, end: 20060101

REACTIONS (1)
  - DERMATITIS BULLOUS [None]
